FAERS Safety Report 18812012 (Version 1)
Quarter: 2021Q1

REPORT INFORMATION
  Report Type: Spontaneous
  Country: ES (occurrence: ES)
  Receive Date: 20210129
  Receipt Date: 20210129
  Transmission Date: 20210419
  Serious: Yes (Other)
  Sender: FDA-Public Use
  Company Number: ES-ALLERGAN-2104195US

PATIENT
  Sex: Female
  Weight: 54 kg

DRUGS (7)
  1. LEVONORGESTREL ? BP [Suspect]
     Active Substance: LEVONORGESTREL
     Indication: INTRAUTERINE CONTRACEPTION
     Dosage: 0.02 MG, QD
     Route: 015
     Dates: start: 20201221, end: 20201230
  2. CASSIA ANGUSTIFOLIA (SEN) [Concomitant]
     Indication: CONSTIPATION
     Dosage: INFUSION
     Dates: start: 2020
  3. SEROQUEL [Concomitant]
     Active Substance: QUETIAPINE FUMARATE
     Indication: DEPRESSION
     Dosage: 300 MG, QD
     Dates: start: 2015
  4. FERRO HIDROX?SACAR. [Concomitant]
     Indication: ANAEMIA
     Dosage: 100 MG/5 ML
     Route: 042
     Dates: start: 202002, end: 202012
  5. CITALOPRAM CINFA COMPRIMIDOS RECUBIERTOS CON PELICULA EFG [Concomitant]
     Indication: DEPRESSION
     Dosage: 20 MG, QD
     Dates: start: 2000
  6. OMEPRAZOL ALTER DURAS GASTRORRESISTENTES EFG [Concomitant]
     Indication: GASTROOESOPHAGEAL REFLUX PROPHYLAXIS
     Dosage: 20 MG, QD
     Dates: start: 2013
  7. LYRICA [Concomitant]
     Active Substance: PREGABALIN
     Indication: ANXIETY
     Dosage: 200 MG, QD
     Dates: start: 2013

REACTIONS (7)
  - Nervousness [Recovered/Resolved]
  - Metrorrhagia [Recovered/Resolved]
  - Back pain [Recovering/Resolving]
  - Abdominal pain [Recovering/Resolving]
  - Migraine [Recovering/Resolving]
  - Nausea [Recovered/Resolved]
  - Groin pain [Recovered/Resolved]

NARRATIVE: CASE EVENT DATE: 20201221
